FAERS Safety Report 11219778 (Version 2)
Quarter: 2015Q3

REPORT INFORMATION
  Report Type: Spontaneous
  Country: JP (occurrence: JP)
  Receive Date: 20150625
  Receipt Date: 20150810
  Transmission Date: 20151125
  Serious: Yes (Hospitalization)
  Sender: FDA-Public Use
  Company Number: JP-GUERBET LLC-1040188

PATIENT
  Age: 32 Year
  Sex: Female
  Weight: 45 kg

DRUGS (7)
  1. DOTAREM [Suspect]
     Active Substance: GADOTERATE MEGLUMINE
     Indication: NUCLEAR MAGNETIC RESONANCE IMAGING
     Route: 040
     Dates: start: 20150617, end: 20150617
  2. DOPAMINE HYDROCHLORIDE. [Interacting]
     Active Substance: DOPAMINE HYDROCHLORIDE
     Dates: start: 20150617, end: 20150617
  3. LACTEC [Interacting]
     Active Substance: CALCIUM CHLORIDE ANHYDROUS\POTASSIUM CHLORIDE\SODIUM CHLORIDE\SODIUM LACTATE
     Dates: start: 20150617, end: 20150617
  4. PRIMPERAN [Interacting]
     Active Substance: METOCLOPRAMIDE HYDROCHLORIDE
     Dates: start: 20150617, end: 20150617
  5. GASTER [Interacting]
     Active Substance: FAMOTIDINE
     Dates: start: 20150617, end: 20150617
  6. SAXIZON [Interacting]
     Active Substance: HYDROCORTISONE SODIUM SUCCINATE
     Dates: start: 20150617, end: 20150617
  7. SALINE [Interacting]
     Active Substance: SODIUM CHLORIDE
     Dates: start: 20150617, end: 20150617

REACTIONS (5)
  - Laryngeal oedema [Recovered/Resolved]
  - Rash [Recovered/Resolved]
  - Face oedema [Recovered/Resolved]
  - Vomiting [Recovered/Resolved]
  - Anaphylactic shock [Recovered/Resolved]

NARRATIVE: CASE EVENT DATE: 20150617
